FAERS Safety Report 12613805 (Version 1)
Quarter: 2016Q3

REPORT INFORMATION
  Report Type: Spontaneous
  Country: US (occurrence: US)
  Receive Date: 20160802
  Receipt Date: 20160802
  Transmission Date: 20161109
  Serious: No
  Sender: FDA-Public Use
  Company Number: US-PFIZER INC-2016350851

PATIENT
  Age: 48 Year
  Sex: Female

DRUGS (1)
  1. SUTENT [Suspect]
     Active Substance: SUNITINIB MALATE
     Dosage: 1 DF, DAILY (DAYS 1 THROUGH 28 THEN 2 WEEKS OFF)
     Route: 048
     Dates: start: 201607

REACTIONS (2)
  - Decreased appetite [Unknown]
  - Fatigue [Unknown]
